FAERS Safety Report 7892587-1 (Version None)
Quarter: 2011Q4

REPORT INFORMATION
  Report Type: 
  Country: None (occurrence: None)
  Receive Date: 20111104
  Receipt Date: 20111027
  Transmission Date: 20120403
  Serious: Yes (Hospitalization)
  Sender: FDA-Public Use
  Company Number: JP-EISAI INC-E7389-01435-SPO-JP

PATIENT
  Age: 63 Year
  Sex: Female

DRUGS (3)
  1. HALAVEN [Suspect]
     Indication: BREAST CANCER RECURRENT
     Route: 041
     Dates: start: 20110805
  2. HERCEPTIN [Suspect]
     Indication: BREAST CANCER RECURRENT
     Dosage: UNKNOWN
     Route: 065
  3. TYKERB [Concomitant]
     Indication: BREAST CANCER RECURRENT
     Dosage: UNKNOWN
     Route: 048

REACTIONS (1)
  - FEBRILE NEUTROPENIA [None]
